FAERS Safety Report 16455436 (Version 3)
Quarter: 2019Q3

REPORT INFORMATION
  Report Type: Spontaneous
  Country: US (occurrence: US)
  Receive Date: 20190620
  Receipt Date: 20190822
  Transmission Date: 20191004
  Serious: No
  Sender: FDA-Public Use
  Company Number: US-009507513-1905USA010284

PATIENT
  Sex: Female
  Weight: 75.28 kg

DRUGS (1)
  1. BELSOMRA [Suspect]
     Active Substance: SUVOREXANT
     Indication: INSOMNIA
     Dosage: 20 MILLIGRAM ONCE PER DAY
     Route: 048
     Dates: start: 20190401

REACTIONS (7)
  - Therapeutic response unexpected [Unknown]
  - Blood glucose decreased [Unknown]
  - Body temperature decreased [Unknown]
  - Insomnia [Recovering/Resolving]
  - Weight decreased [Unknown]
  - Abnormal dreams [Unknown]
  - Gastrointestinal sounds abnormal [Recovering/Resolving]

NARRATIVE: CASE EVENT DATE: 2019
